FAERS Safety Report 19808808 (Version 2)
Quarter: 2021Q3

REPORT INFORMATION
  Report Type: Spontaneous
  Country: US (occurrence: US)
  Receive Date: 20210909
  Receipt Date: 20210921
  Transmission Date: 20211014
  Serious: Yes (Hospitalization, Other)
  Sender: FDA-Public Use
  Company Number: US-SCIEGENPHARMA-2021SCISPO00733

PATIENT
  Sex: Male

DRUGS (1)
  1. GABAPENTIN CAPSULES [Suspect]
     Active Substance: GABAPENTIN
     Indication: HIP FRACTURE
     Dosage: 6 TABLETS PER DAY
     Route: 065

REACTIONS (9)
  - Weight decreased [Unknown]
  - Product use in unapproved indication [None]
  - Sexual dysfunction [Unknown]
  - Malaise [Unknown]
  - Muscular weakness [Unknown]
  - Gait disturbance [Unknown]
  - Cardiac failure [Unknown]
  - Flail chest [Unknown]
  - Dyspnoea [Unknown]
